FAERS Safety Report 25884428 (Version 4)
Quarter: 2025Q4

REPORT INFORMATION
  Report Type: Spontaneous
  Country: AU (occurrence: AU)
  Receive Date: 20251006
  Receipt Date: 20251204
  Transmission Date: 20260119
  Serious: Yes (Hospitalization, Other)
  Sender: OTSUKA
  Company Number: AU-MMM-Otsuka-WC2MTBFU

PATIENT
  Sex: Female

DRUGS (12)
  1. ARIPIPRAZOLE [Suspect]
     Active Substance: ARIPIPRAZOLE
     Indication: Hyperprolactinaemia
     Dosage: 5 MG, DAILY
     Route: 065
     Dates: start: 2021
  2. ARIPIPRAZOLE [Suspect]
     Active Substance: ARIPIPRAZOLE
     Dosage: 2.5 MG
     Route: 065
  3. ARIPIPRAZOLE [Suspect]
     Active Substance: ARIPIPRAZOLE
     Indication: Product used for unknown indication
     Dosage: 400 MG
  4. MIRTAZAPINE [Suspect]
     Active Substance: MIRTAZAPINE
     Indication: Product used for unknown indication
     Dosage: 60 MG, QD (AT NIGHT)
     Route: 065
  5. MIRTAZAPINE [Suspect]
     Active Substance: MIRTAZAPINE
     Dosage: 45 MG, QD (AT NIGHT)
     Route: 065
  6. MIRTAZAPINE [Suspect]
     Active Substance: MIRTAZAPINE
     Dosage: 30 MG, QD (AT NIGHT)
     Route: 065
  7. QUETIAPINE [Suspect]
     Active Substance: QUETIAPINE
     Indication: Product used for unknown indication
     Dosage: 800 MG QD (AT NIGHT)
     Route: 065
  8. PALIPERIDONE [Suspect]
     Active Substance: PALIPERIDONE
     Indication: Product used for unknown indication
     Dosage: 200 MG EVERY 1 WEEK
     Route: 065
  9. PALIPERIDONE [Suspect]
     Active Substance: PALIPERIDONE
     Dosage: 300 MG EVERY 1 WEEK
     Route: 065
  10. PALIPERIDONE [Suspect]
     Active Substance: PALIPERIDONE
     Dosage: 50 MG, EVERY 4 WEEKS
  11. PALIPERIDONE [Suspect]
     Active Substance: PALIPERIDONE
     Dosage: 50 MG, FOUR TIMES WEEKLY
  12. PALIPERIDONE [Suspect]
     Active Substance: PALIPERIDONE
     Dosage: 75 MG EVERY 4 WEEKS
     Route: 065

REACTIONS (4)
  - Schizoaffective disorder [Unknown]
  - Parkinson^s disease [Unknown]
  - Depressive symptom [Unknown]
  - Extrapyramidal disorder [Unknown]

NARRATIVE: CASE EVENT DATE: 20210101
